FAERS Safety Report 9609067 (Version 2)
Quarter: 2013Q4

REPORT INFORMATION
  Report Type: Report from Study
  Country: CA (occurrence: CA)
  Receive Date: 20131009
  Receipt Date: 20131009
  Transmission Date: 20140711
  Serious: Yes (Hospitalization)
  Sender: FDA-Public Use
  Company Number: CA-ABBVIE-13P-028-1121538-00

PATIENT
  Age: 55 Year
  Sex: Female
  Weight: 91 kg

DRUGS (25)
  1. HUMIRA [Suspect]
     Indication: CROHN^S DISEASE
     Dosage: BASELINE
     Route: 058
     Dates: start: 20090612, end: 20090612
  2. HUMIRA [Suspect]
     Dosage: WEEK 2
     Route: 058
  3. HUMIRA [Suspect]
     Route: 058
     Dates: start: 20090710
  4. HUMIRA [Suspect]
     Route: 058
     Dates: start: 20091120
  5. PARIET [Concomitant]
     Indication: GASTROOESOPHAGEAL REFLUX DISEASE
     Dates: start: 2006, end: 20130705
  6. DIVALPROEX SODIUM [Concomitant]
     Indication: SCHIZOPHRENIA
     Dosage: QAM
     Dates: start: 2005
  7. DIVALPROEX SODIUM [Concomitant]
     Dosage: QHS
     Dates: start: 2005
  8. CALCIUM MAGNESIUM WITH VITAMIN D3 [Concomitant]
     Indication: MINERAL SUPPLEMENTATION
     Dates: start: 20090603, end: 20121231
  9. CALCIUM MAGNESIUM WITH VITAMIN D3 [Concomitant]
     Dates: start: 20130101
  10. TYLENOL [Concomitant]
     Indication: HEADACHE
     Dates: start: 20090321
  11. LOPERAMIDE HCL [Concomitant]
     Indication: DIARRHOEA
     Dosage: 1-2 TAB QID PRN
     Dates: start: 20100624
  12. ADVAIR [Concomitant]
     Indication: ASTHMA
     Dates: start: 20101107
  13. ADVAIR [Concomitant]
     Indication: CHRONIC OBSTRUCTIVE PULMONARY DISEASE
     Dates: start: 20111010, end: 20111012
  14. ADVAIR [Concomitant]
     Indication: CHRONIC OBSTRUCTIVE PULMONARY DISEASE
  15. SPIRIVA [Concomitant]
     Indication: ASTHMA
     Dates: start: 20101107
  16. SEROQUEL [Concomitant]
     Indication: INSOMNIA
     Dosage: QHS DAILY
     Dates: start: 20120826
  17. CENTRUM [Concomitant]
     Indication: VITAMIN SUPPLEMENTATION
     Dates: start: 20110606
  18. VITAMIN B12 [Concomitant]
     Indication: VITAMIN SUPPLEMENTATION
     Dates: start: 20110603
  19. VITAMIN D [Concomitant]
     Indication: VITAMIN SUPPLEMENTATION
     Dates: start: 20110603
  20. OMEGA 3 [Concomitant]
     Indication: SUPPLEMENTATION THERAPY
     Dates: start: 20110603
  21. SALBUTAMOL [Concomitant]
     Indication: DYSPNOEA
     Dosage: 2 PUFF Q4H PRN
     Dates: start: 20110630
  22. ATROVENT [Concomitant]
     Indication: DYSPNOEA
     Dosage: 4 PUFF Q4H PRN
     Dates: start: 20110630
  23. MALTLEVOL-12 [Concomitant]
     Indication: VITAMIN SUPPLEMENTATION
     Dates: start: 20101025
  24. BUSCOPAN [Concomitant]
     Indication: CROHN^S DISEASE
     Dosage: 10 MG TID PRN
     Dates: start: 20100709
  25. BUSCOPAN [Concomitant]
     Indication: ABDOMINAL PAIN

REACTIONS (1)
  - Pleuritic pain [Recovered/Resolved]
